FAERS Safety Report 12333558 (Version 1)
Quarter: 2016Q2

REPORT INFORMATION
  Report Type: Spontaneous
  Country: US (occurrence: US)
  Receive Date: 20160504
  Receipt Date: 20160504
  Transmission Date: 20160815
  Serious: No
  Sender: FDA-Public Use
  Company Number: US-ROCHE-1675941

PATIENT
  Sex: Female

DRUGS (6)
  1. PANTOPRAZOLE [Concomitant]
     Active Substance: PANTOPRAZOLE SODIUM
  2. MELOXICAM. [Concomitant]
     Active Substance: MELOXICAM
  3. PAROXETINE. [Concomitant]
     Active Substance: PAROXETINE
  4. SIMVASTATIN. [Concomitant]
     Active Substance: SIMVASTATIN
  5. ESBRIET [Suspect]
     Active Substance: PIRFENIDONE
     Indication: LUNG DISORDER
     Route: 048
     Dates: start: 20150423
  6. CLARINEX [Concomitant]
     Active Substance: DESLORATADINE

REACTIONS (6)
  - Mood swings [Unknown]
  - Rhinorrhoea [Unknown]
  - Decreased appetite [Unknown]
  - Headache [Unknown]
  - Rhinitis [Unknown]
  - Dyspepsia [Unknown]
